FAERS Safety Report 6189910-5 (Version None)
Quarter: 2009Q2

REPORT INFORMATION
  Report Type: 
  Country: None (occurrence: None)
  Receive Date: 20090512
  Receipt Date: 20090512
  Transmission Date: 20091009
  Serious: Yes (Life-Threatening)
  Sender: FDA-Public Use
  Company Number: None

PATIENT
  Sex: Female
  Weight: 54.4316 kg

DRUGS (1)
  1. HYDROXYCHOLOROQUINE 200 MG [Suspect]
     Indication: RHEUMATOID ARTHRITIS
     Dosage: 2 DAILY
     Dates: start: 20090406, end: 20090428

REACTIONS (1)
  - DRUG HYPERSENSITIVITY [None]
